FAERS Safety Report 6432737-7 (Version None)
Quarter: 2009Q4

REPORT INFORMATION
  Report Type: 
  Country: None (occurrence: None)
  Receive Date: 20091105
  Receipt Date: 20091028
  Transmission Date: 20100525
  Serious: Yes (Hospitalization)
  Sender: FDA-Public Use
  Company Number: TCI2009A03151

PATIENT
  Age: 77 Year
  Sex: Male

DRUGS (10)
  1. TAKEPRON OD (LANSOPRAZOLE) [Suspect]
     Indication: REFLUX OESOPHAGITIS
     Dosage: 30 MG (30 MG, 1 IN 1 D), ORAL; 30 MG, (15 MG, 2 IN 1 D), PER ORAL
     Route: 048
     Dates: start: 20061101, end: 20090804
  2. TAKEPRON OD (LANSOPRAZOLE) [Suspect]
     Indication: REFLUX OESOPHAGITIS
     Dosage: 30 MG (30 MG, 1 IN 1 D), ORAL; 30 MG, (15 MG, 2 IN 1 D), PER ORAL
     Route: 048
     Dates: start: 20091019
  3. NORVASC [Concomitant]
  4. PRAVASTATIN [Concomitant]
  5. EPL (LECITHIN) [Concomitant]
  6. BIOLACT (LACTOMIN) [Concomitant]
  7. GANATON (ITOPRIDE HYDROCHLORIDE) [Concomitant]
  8. BUFFERIN [Concomitant]
  9. ETICALM (ETIZOLAM) [Concomitant]
  10. DIOVAN [Concomitant]

REACTIONS (6)
  - DECREASED APPETITE [None]
  - HYPONATRAEMIA [None]
  - INAPPROPRIATE ANTIDIURETIC HORMONE SECRETION [None]
  - MALAISE [None]
  - POLYDIPSIA [None]
  - SPINAL FUSION SURGERY [None]
